FAERS Safety Report 9248691 (Version 1)
Quarter: 2013Q2

REPORT INFORMATION
  Report Type: Spontaneous
  Country: TW (occurrence: TW)
  Receive Date: 20130423
  Receipt Date: 20130423
  Transmission Date: 20140414
  Serious: Yes (Hospitalization)
  Sender: FDA-Public Use
  Company Number: TW-ROCHE-1216418

PATIENT
  Age: 42 Year
  Sex: Female

DRUGS (1)
  1. MABTHERA [Suspect]
     Indication: RHEUMATOID ARTHRITIS
     Dosage: LAST DOSE PRIOR TO SAE 21/DEC/2012
     Route: 042
     Dates: start: 20111207

REACTIONS (3)
  - Diarrhoea [Recovered/Resolved]
  - Pancreatitis [Recovering/Resolving]
  - Pseudomembranous colitis [Not Recovered/Not Resolved]
